FAERS Safety Report 9276403 (Version 1)
Quarter: 2013Q2

REPORT INFORMATION
  Report Type: Spontaneous
  Country: US (occurrence: US)
  Receive Date: 20130507
  Receipt Date: 20130507
  Transmission Date: 20140414
  Serious: No
  Sender: FDA-Public Use
  Company Number: US-ASTRAZENECA-2013SE28850

PATIENT
  Age: 50 Year
  Sex: Male

DRUGS (4)
  1. BRILINTA [Suspect]
     Indication: STENT PLACEMENT
     Route: 048
     Dates: start: 201302
  2. BRILINTA [Suspect]
     Indication: STENT PLACEMENT
     Route: 048
  3. PLAVIX [Suspect]
     Indication: STENT PLACEMENT
     Route: 048
  4. FUROSEMIDE [Concomitant]

REACTIONS (2)
  - Rash [Unknown]
  - Dyspnoea [Unknown]
